FAERS Safety Report 6347332-8 (Version None)
Quarter: 2009Q3

REPORT INFORMATION
  Report Type: 
  Country: None (occurrence: None)
  Receive Date: 20090910
  Receipt Date: 20090902
  Transmission Date: 20100115
  Serious: Yes (Hospitalization)
  Sender: FDA-Public Use
  Company Number: US-BAYER-200930750GPV

PATIENT
  Age: 53 Year
  Sex: Female
  Weight: 50 kg

DRUGS (7)
  1. SORAFENIB [Suspect]
     Indication: METASTATIC RENAL CELL CARCINOMA
     Route: 048
     Dates: start: 20090717
  2. FENTANYL [Concomitant]
     Route: 062
     Dates: start: 20090702
  3. METAMIZOLE [Concomitant]
     Route: 048
     Dates: start: 20090702
  4. MORPHINE HYDROCHLORIDE [Concomitant]
     Route: 048
     Dates: start: 20090702
  5. AMPHOTERICIN B [Concomitant]
     Route: 048
     Dates: start: 20090804
  6. SPIRONOLACTONE [Concomitant]
     Route: 048
     Dates: start: 20090804
  7. CIPROFLAXACIN [Concomitant]
     Dates: start: 20090804, end: 20090810

REACTIONS (6)
  - BLOOD CREATININE INCREASED [None]
  - C-REACTIVE PROTEIN INCREASED [None]
  - DECREASED APPETITE [None]
  - HYPONATRAEMIA [None]
  - INSOMNIA [None]
  - NAUSEA [None]
